FAERS Safety Report 6310944-1 (Version None)
Quarter: 2009Q3

REPORT INFORMATION
  Report Type: 
  Country: None (occurrence: None)
  Receive Date: 20090816
  Receipt Date: 20090813
  Transmission Date: 20100115
  Serious: Yes (Hospitalization)
  Sender: FDA-Public Use
  Company Number: DE-RB-019384-09

PATIENT
  Age: 34 Year
  Sex: Female

DRUGS (4)
  1. SUBOXONE [Suspect]
     Indication: DRUG DEPENDENCE
     Route: 060
     Dates: start: 20071219, end: 20090108
  2. RIVOTRIL [Concomitant]
     Indication: DEPRESSION
     Dosage: DOSING INFORMATION UNKNOWN
     Route: 065
     Dates: start: 20010101
  3. XIMOVAN [Concomitant]
     Indication: SLEEP DISORDER
     Dosage: DOSING INFORMATION UNKNOWN
     Route: 065
     Dates: start: 20070101
  4. PANTOZOL [Concomitant]
     Indication: OESOPHAGITIS
     Dosage: DOSING INFORMATION UNKNOWN
     Route: 065
     Dates: start: 20070101

REACTIONS (3)
  - ABORTION INDUCED [None]
  - DRUG EXPOSURE DURING PREGNANCY [None]
  - PREGNANCY [None]
